FAERS Safety Report 5379208-7 (Version None)
Quarter: 2007Q3

REPORT INFORMATION
  Report Type: 
  Country: None (occurrence: None)
  Receive Date: 20070705
  Receipt Date: 20070627
  Transmission Date: 20080115
  Serious: Yes (Hospitalization, Disabling, Other)
  Sender: FDA-Public Use
  Company Number: DE-SANOFI-SYNTHELABO-A04200700671

PATIENT
  Sex: Female
  Weight: 62 kg

DRUGS (1)
  1. ZOLPIDEM TARTRATE [Suspect]
     Indication: CIRCADIAN RHYTHM SLEEP DISORDER
     Dosage: UP TO 20 TABLETS DAILY
     Route: 048

REACTIONS (5)
  - CONVULSION [None]
  - DISORIENTATION [None]
  - DRUG ABUSER [None]
  - DRUG DEPENDENCE [None]
  - HYPERHIDROSIS [None]
